FAERS Safety Report 4733599-6 (Version None)
Quarter: 2005Q3

REPORT INFORMATION
  Report Type: 
  Country: None (occurrence: None)
  Receive Date: 20050729
  Receipt Date: 20050722
  Transmission Date: 20060218
  Serious: Yes (Life-Threatening, Other)
  Sender: FDA-Public Use
  Company Number: 2005099476

PATIENT
  Age: 57 Year
  Sex: Male
  Weight: 93 kg

DRUGS (33)
  1. IDARUBICIN HYDROCHLORIDE POWDER, STERILE (IDARUBICIN HYDROCHLORIDE) [Suspect]
     Indication: ACUTE MYELOID LEUKAEMIA
     Dosage: UNK (18 MG, DAILY), INTRAVENOUS
     Route: 042
     Dates: start: 20050525, end: 20050719
  2. CYTARABINE [Suspect]
     Indication: ACUTE MYELOID LEUKAEMIA
     Dosage: UNK (6 GRAM, TWICE DAILY), INTRAVENOUS
     Route: 042
     Dates: start: 20050525, end: 20050719
  3. ETOPOSIDE [Suspect]
     Indication: ACUTE MYELOID LEUKAEMIA
     Dosage: UNK (150 MG, DAILY), INTRAVENOUS
     Route: 042
     Dates: start: 20050525, end: 20050719
  4. FILGRASTIM (FILGRASTIM) [Suspect]
     Indication: COLONY STIMULATING FACTOR PROPHYLAXIS
     Dosage: 300 MCG (300 MCG, 1 IN 1 D), SUBCUTANEOUS
     Route: 058
     Dates: start: 20050601, end: 20050719
  5. AMPHOTERICIN B [Concomitant]
  6. AMPHOTERICIN B [Concomitant]
  7. ALLOPURINOL [Concomitant]
  8. PANTOPRAZOLE SODIUM [Concomitant]
  9. ALBUTEROL SULFATE HFA [Concomitant]
  10. PULMICORT [Concomitant]
  11. HYDROXYUREA [Concomitant]
  12. URAL (CITRIC ACID, SODIUM BICARBONATE, SODIUM CITRATE, TARTARIC ACID) [Concomitant]
  13. DIFFLAM MOUTH GEL (BENZYDAMINE HYDROCHLORIDE, CETYLPYRIDINIUM CHLORIDE [Concomitant]
  14. NILSTAT (NYSTATIN) [Concomitant]
  15. FLUCONAZOLE [Concomitant]
  16. DEXAMETHASONE [Concomitant]
  17. FUROSEMIDE [Concomitant]
  18. POTASSIUM CHLORIDE [Concomitant]
  19. VANCOMYCIN [Concomitant]
  20. MORPHINE [Concomitant]
  21. DIAZEPAM [Concomitant]
  22. TEMAZEPAM [Concomitant]
  23. NAVOBAN (TROPISETRON HYDROCHLORIDE) [Concomitant]
  24. PROCHLORPERAZINE MALEATE [Concomitant]
  25. MEPERIDINE HCL [Concomitant]
  26. ATIVAN [Concomitant]
  27. PROMETHAZINE [Concomitant]
  28. HYDROCORTISONE [Concomitant]
  29. MEROPENEM (MEROPENEM) [Concomitant]
  30. VANCOMYCIN [Concomitant]
  31. CHLORSIG (CHLORAMPHENICOL) [Concomitant]
  32. FEBRIDOL (PARACETAMOL) [Concomitant]
  33. PRAMIN (METOCLOPRAMIDE) [Concomitant]

REACTIONS (4)
  - HYPOKALAEMIA [None]
  - LEUKOPENIA [None]
  - NEUTROPENIA [None]
  - THROMBOCYTOPENIA [None]
